FAERS Safety Report 9931201 (Version 3)
Quarter: 2014Q1

REPORT INFORMATION
  Report Type: Report from Study
  Country: MX (occurrence: MX)
  Receive Date: 20140228
  Receipt Date: 20140326
  Transmission Date: 20141002
  Serious: Yes (Other)
  Sender: FDA-Public Use
  Company Number: PHHY2014MX024401

PATIENT
  Sex: Female

DRUGS (5)
  1. TEGRETOL [Suspect]
     Indication: TRIGEMINAL NERVE DISORDER
     Dosage: 200 UNK TID
     Dates: start: 201312
  2. TEGRETOL [Suspect]
     Dosage: 200 UNK BID
  3. TEGRETOL [Suspect]
     Dosage: 1.5 DF UNK
     Route: 048
  4. TREMEPEN [Concomitant]
     Indication: TRIGEMINAL NERVE DISORDER
     Dosage: 2 DF DAILY
  5. ATORVASTATINA [Concomitant]
     Indication: BLOOD CHOLESTEROL INCREASED
     Dosage: 1 DF DAILY
     Dates: start: 201308

REACTIONS (5)
  - Cardiac disorder [Not Recovered/Not Resolved]
  - Sensation of heaviness [Not Recovered/Not Resolved]
  - Malaise [Not Recovered/Not Resolved]
  - Dizziness [Not Recovered/Not Resolved]
  - Drug ineffective [Not Recovered/Not Resolved]
